FAERS Safety Report 13109920 (Version 1)
Quarter: 2017Q1

REPORT INFORMATION
  Report Type: Spontaneous
  Country: US (occurrence: US)
  Receive Date: 20170112
  Receipt Date: 20170112
  Transmission Date: 20170428
  Serious: No
  Sender: FDA-Public Use
  Company Number: US-ROCHE-1100544

PATIENT
  Age: 46 Year
  Sex: Male

DRUGS (4)
  1. ACTIVASE [Suspect]
     Active Substance: ALTEPLASE
     Indication: CHEST PAIN
     Route: 065
     Dates: start: 19891210
  2. TOLINASE [Concomitant]
     Active Substance: TOLAZAMIDE
     Route: 065
  3. NITRO PATCH [Concomitant]
     Active Substance: NITROGLYCERIN
     Route: 065
  4. PROCARDIA XL [Concomitant]
     Active Substance: NIFEDIPINE
     Route: 065

REACTIONS (2)
  - Ventricular extrasystoles [Unknown]
  - Bradycardia [Unknown]
